FAERS Safety Report 20335338 (Version 1)
Quarter: 2022Q1

REPORT INFORMATION
  Report Type: Spontaneous
  Country: US (occurrence: None)
  Receive Date: 20220113
  Receipt Date: 20220113
  Transmission Date: 20220424
  Serious: Yes (Hospitalization, Disabling)
  Sender: FDA-Public Use
  Company Number: None

PATIENT
  Age: 72 Year
  Sex: Female
  Weight: 65.5 kg

DRUGS (10)
  1. IBRANCE [Suspect]
     Active Substance: PALBOCICLIB
     Indication: Breast cancer
     Dosage: FREQUENCY : DAILY;?
     Route: 048
     Dates: start: 20211112, end: 20220101
  2. ATORVASTATIN [Concomitant]
     Active Substance: ATORVASTATIN
  3. Calcium 500mg - Vitamin D3 2000 units [Concomitant]
  4. Vitamin D3 4000 units [Concomitant]
  5. XGEVA [Concomitant]
     Active Substance: DENOSUMAB
  6. FULVESTRANT [Concomitant]
     Active Substance: FULVESTRANT
     Dates: start: 20211216
  7. IBUPROFEN [Concomitant]
     Active Substance: IBUPROFEN
  8. LEVETIRACETAM [Concomitant]
     Active Substance: LEVETIRACETAM
  9. MINERALS\VITAMINS [Concomitant]
     Active Substance: MINERALS\VITAMINS
  10. OMEGA-3 ACIDS [Concomitant]
     Active Substance: OMEGA-3 FATTY ACIDS

REACTIONS (1)
  - Colitis [None]

NARRATIVE: CASE EVENT DATE: 20220101
